APPROVED DRUG PRODUCT: OMNARIS
Active Ingredient: CICLESONIDE
Strength: 0.05MG/SPRAY
Dosage Form/Route: SPRAY, METERED;NASAL
Application: N022004 | Product #001
Applicant: COVIS PHARMA GMBH
Approved: Oct 20, 2006 | RLD: Yes | RS: Yes | Type: RX

PATENTS:
Patent 8371292 | Expires: Feb 1, 2028